FAERS Safety Report 11695947 (Version 1)
Quarter: 2015Q4

REPORT INFORMATION
  Report Type: Spontaneous
  Country: US (occurrence: None)
  Receive Date: 20151103
  Receipt Date: 20151103
  Transmission Date: 20160304
  Serious: No
  Sender: FDA-Public Use
  Company Number: None

PATIENT
  Age: 55 Year
  Sex: Female

DRUGS (1)
  1. HUMIRA [Suspect]
     Active Substance: ADALIMUMAB

REACTIONS (5)
  - Influenza like illness [None]
  - No therapeutic response [None]
  - Pruritus [None]
  - Fatigue [None]
  - Blood glucose increased [None]

NARRATIVE: CASE EVENT DATE: 20151101
